FAERS Safety Report 5028084-0 (Version None)
Quarter: 2006Q2

REPORT INFORMATION
  Report Type: 
  Country: None (occurrence: None)
  Receive Date: 20060613
  Receipt Date: 20060602
  Transmission Date: 20061013
  Serious: Yes (Other)
  Sender: FDA-Public Use
  Company Number: 2006051714

PATIENT
  Sex: Female

DRUGS (1)
  1. LYRICA [Suspect]
     Indication: ILL-DEFINED DISORDER
     Dosage: 100 MG (50 MG, 2 IN 1 D)
     Dates: start: 20060101

REACTIONS (4)
  - DERMATITIS BULLOUS [None]
  - NEURALGIA [None]
  - SPINAL LAMINECTOMY [None]
  - THROMBOCYTOPENIA [None]
